FAERS Safety Report 5140240-X (Version None)
Quarter: 2006Q4

REPORT INFORMATION
  Report Type: 
  Country: None (occurrence: None)
  Receive Date: 20061031
  Receipt Date: 20061019
  Transmission Date: 20070319
  Serious: Yes (Hospitalization, Congenital Anomaly)
  Sender: FDA-Public Use
  Company Number: FR-JNJFOC-20061005174

PATIENT
  Sex: Female
  Weight: 2.39 kg

DRUGS (3)
  1. EPITOMAX [Suspect]
     Indication: DRUG EXPOSURE DURING PREGNANCY
  2. RIVOTRIL [Suspect]
     Indication: DRUG EXPOSURE DURING PREGNANCY
  3. LAMICTAL [Suspect]
     Indication: DRUG EXPOSURE DURING PREGNANCY

REACTIONS (1)
  - VENTRICULAR SEPTAL DEFECT [None]
